FAERS Safety Report 10904130 (Version 2)
Quarter: 2015Q1

REPORT INFORMATION
  Report Type: Spontaneous
  Country: IT (occurrence: None)
  Receive Date: 20150306
  Receipt Date: 20150327
  Transmission Date: 20150721
  Serious: Yes (Other)
  Sender: FDA-Public Use
  Company Number: FK201501048

PATIENT
  Age: 67 Year
  Sex: Female
  Weight: 82 kg

DRUGS (3)
  1. ENDOXAN (CYCLOPHOSPHAMIDE MONOHYDRATE) [Concomitant]
  2. FARMORUBICINA (EPIRUBICIN HYDROCHLORIDE) [Concomitant]
  3. ZOLEDRONIC ACID [Suspect]
     Active Substance: ZOLEDRONIC ACID
     Indication: METASTASES TO BONE
     Dates: start: 20150212

REACTIONS (2)
  - Angioedema [None]
  - Swelling face [None]

NARRATIVE: CASE EVENT DATE: 20150212
